FAERS Safety Report 7387240-7 (Version None)
Quarter: 2011Q1

REPORT INFORMATION
  Report Type: 
  Country: None (occurrence: None)
  Receive Date: 20110331
  Receipt Date: 20110325
  Transmission Date: 20110831
  Serious: Yes (Other)
  Sender: FDA-Public Use
  Company Number: US-PFIZER INC-2011047263

PATIENT
  Sex: Female
  Weight: 83.9 kg

DRUGS (3)
  1. CARDURA [Concomitant]
     Indication: HYPERTENSION
     Dosage: UNK
  2. LEVOXYL [Concomitant]
     Indication: THYROIDECTOMY
     Dosage: UNK
  3. ZITHROMAX [Suspect]
     Indication: BRONCHITIS
     Dosage: 250 MG, 1X/DAY
     Route: 048
     Dates: start: 20110226, end: 20110301

REACTIONS (4)
  - OEDEMA MOUTH [None]
  - OEDEMA PERIPHERAL [None]
  - SWELLING FACE [None]
  - RASH [None]
